APPROVED DRUG PRODUCT: FLUVOXAMINE MALEATE
Active Ingredient: FLUVOXAMINE MALEATE
Strength: 25MG
Dosage Form/Route: TABLET;ORAL
Application: A075889 | Product #001
Applicant: QUAGEN PHARMACEUTICALS LLC
Approved: Nov 29, 2000 | RLD: No | RS: No | Type: DISCN